FAERS Safety Report 23729515 (Version 1)
Quarter: 2024Q2

REPORT INFORMATION
  Report Type: Spontaneous
  Country: SE (occurrence: SE)
  Receive Date: 20240410
  Receipt Date: 20240410
  Transmission Date: 20240715
  Serious: Yes (Life-Threatening)
  Sender: FDA-Public Use
  Company Number: None

PATIENT
  Age: 39 Year
  Sex: Male
  Weight: 100 kg

DRUGS (1)
  1. OMEPRAZOLE [Suspect]
     Active Substance: OMEPRAZOLE
     Indication: Gastritis
     Dosage: OMEPRAZOL, 1 TABLET ONCE A DAY DOSE: FIRST DOSE, OMEPRAZOLE ACTAVIS
     Route: 048
     Dates: start: 20240306, end: 20240307

REACTIONS (6)
  - Vomiting [Recovering/Resolving]
  - Fear of death [Recovered/Resolved]
  - Dizziness [Recovering/Resolving]
  - Muscular weakness [Recovering/Resolving]
  - Motion sickness [Recovering/Resolving]
  - Hallucination [Recovered/Resolved]

NARRATIVE: CASE EVENT DATE: 20240306
